FAERS Safety Report 8980564 (Version 1)
Quarter: 2012Q4

REPORT INFORMATION
  Report Type: 
  Country: JP (occurrence: JP)
  Receive Date: 20121221
  Receipt Date: 20121221
  Transmission Date: 20130627
  Serious: Yes (Other)
  Sender: FDA-Public Use
  Company Number: JP-SANOFI-AVENTIS-2012SA079810

PATIENT
  Age: 74 Year
  Sex: Male

DRUGS (7)
  1. ALLEGRA [Suspect]
     Indication: ITCHY SKIN
     Route: 048
     Dates: start: 20111226, end: 20121010
  2. MINOPEN [Suspect]
     Indication: BULLOUS PEMPHIGOID
     Route: 048
     Dates: start: 20120627, end: 20120917
  3. PREDONINE [Concomitant]
     Indication: BULLOUS PEMPHIGOID
  4. BONALON [Concomitant]
     Indication: OSTEOPOROSIS STEROID-INDUCED
     Route: 048
     Dates: start: 20090630
  5. OMEPRAL [Concomitant]
     Indication: REFLUX OESOPHAGITIS
     Route: 048
  6. DIOVANE [Concomitant]
     Indication: HYPERTENSION
     Route: 048
  7. ALLOPURINOL [Concomitant]
     Route: 048

REACTIONS (1)
  - Thrombocytopenia [Recovered/Resolved]
